FAERS Safety Report 9993046 (Version 1)
Quarter: 2014Q1

REPORT INFORMATION
  Report Type: Report from Study
  Country: US (occurrence: US)
  Receive Date: 20140310
  Receipt Date: 20140310
  Transmission Date: 20141002
  Serious: No
  Sender: FDA-Public Use
  Company Number: US-ABBVIE-13P-163-1079081-00

PATIENT
  Sex: Female
  Weight: 86.26 kg

DRUGS (3)
  1. LUPRON DEPOT [Suspect]
     Indication: PRODUCT USED FOR UNKNOWN INDICATION
     Dates: start: 201301
  2. METFORMIN [Concomitant]
     Indication: DIABETES MELLITUS
  3. IBUPROFEN [Concomitant]
     Indication: PAIN

REACTIONS (3)
  - Skin burning sensation [Recovered/Resolved]
  - Hot flush [Recovered/Resolved]
  - Blood glucose increased [Recovered/Resolved]
